FAERS Safety Report 12642230 (Version 1)
Quarter: 2016Q3

REPORT INFORMATION
  Report Type: Spontaneous
  Country: FR (occurrence: FR)
  Receive Date: 20160810
  Receipt Date: 20160810
  Transmission Date: 20161109
  Serious: Yes (Other)
  Sender: FDA-Public Use
  Company Number: FR-SA-2016SA143103

PATIENT
  Age: 43 Year
  Sex: Male

DRUGS (2)
  1. ZOLPIDEM [Suspect]
     Active Substance: ZOLPIDEM\ZOLPIDEM TARTRATE
     Dosage: DOSE: 1 TO 2 TABLETS/DAY
     Route: 042
  2. HAVLANE [Suspect]
     Active Substance: LOPRAZOLAM
     Dosage: DOSE: 2 TO 6 TABLETS PER DAY
     Route: 042

REACTIONS (2)
  - Drug dependence [Unknown]
  - Product use issue [Unknown]
